FAERS Safety Report 4568445-7 (Version None)
Quarter: 2005Q1

REPORT INFORMATION
  Report Type: 
  Country: None (occurrence: None)
  Receive Date: 20050131
  Receipt Date: 20050117
  Transmission Date: 20050727
  Serious: Yes (Hospitalization)
  Sender: FDA-Public Use
  Company Number: 2005CG00134

PATIENT
  Sex: Male

DRUGS (2)
  1. TENORMIN [Suspect]
     Indication: ANGINA PECTORIS
     Dates: start: 20041223
  2. ASPEGIC/FRA [Suspect]
     Indication: ANGINA PECTORIS
     Dates: start: 20041223

REACTIONS (1)
  - ANGIONEUROTIC OEDEMA [None]
